FAERS Safety Report 16508809 (Version 1)
Quarter: 2019Q3

REPORT INFORMATION
  Report Type: Spontaneous
  Country: US (occurrence: US)
  Receive Date: 20190702
  Receipt Date: 20190702
  Transmission Date: 20191004
  Serious: No
  Sender: FDA-Public Use
  Company Number: US-ROCHE-2292720

PATIENT

DRUGS (1)
  1. XELODA [Suspect]
     Active Substance: CAPECITABINE
     Indication: HEPATIC CANCER
     Dosage: 4 500 MG PILLS IN AM, 3500MG PILLS AT NIGHT
     Route: 048

REACTIONS (4)
  - Intentional product use issue [Unknown]
  - Product packaging quantity issue [Unknown]
  - Off label use [Unknown]
  - No adverse event [Unknown]
